FAERS Safety Report 9553476 (Version 3)
Quarter: 2013Q4

REPORT INFORMATION
  Report Type: Report from Study
  Country: US (occurrence: US)
  Receive Date: 20130925
  Receipt Date: 20131115
  Transmission Date: 20140711
  Serious: Yes (Hospitalization, Other)
  Sender: FDA-Public Use
  Company Number: US-ROCHE-1262188

PATIENT
  Age: 80 Year
  Sex: Male
  Weight: 67.19 kg

DRUGS (3)
  1. XELODA [Suspect]
     Indication: COLON CANCER STAGE III
     Route: 048
     Dates: start: 20130812
  2. XELODA [Suspect]
     Route: 048
     Dates: start: 20130812
  3. OXALIPLATIN [Concomitant]
     Route: 042
     Dates: start: 20130812

REACTIONS (8)
  - Diarrhoea [Recovered/Resolved]
  - Malaise [Recovered/Resolved]
  - Temperature intolerance [Not Recovered/Not Resolved]
  - Hiccups [Not Recovered/Not Resolved]
  - Sensory disturbance [Recovered/Resolved]
  - Dizziness [Not Recovered/Not Resolved]
  - Decreased appetite [Not Recovered/Not Resolved]
  - Weight decreased [Not Recovered/Not Resolved]
